FAERS Safety Report 21335196 (Version 1)
Quarter: 2022Q3

REPORT INFORMATION
  Report Type: Spontaneous
  Country: DE (occurrence: DE)
  Receive Date: 20220915
  Receipt Date: 20220915
  Transmission Date: 20221026
  Serious: Yes (Hospitalization)
  Sender: FDA-Public Use
  Company Number: None

PATIENT
  Age: 69 Year
  Sex: Male
  Weight: 80 kg

DRUGS (1)
  1. PRIVIGEN [Suspect]
     Active Substance: HUMAN IMMUNOGLOBULIN G
     Indication: Chronic inflammatory demyelinating polyradiculoneuropathy
     Dosage: 60 GRAM
     Route: 042
     Dates: start: 20220320, end: 20220729

REACTIONS (4)
  - Erythema [Unknown]
  - Tongue oedema [Unknown]
  - Lip oedema [Unknown]
  - Swelling face [Unknown]

NARRATIVE: CASE EVENT DATE: 20220729
